FAERS Safety Report 19639185 (Version 1)
Quarter: 2021Q3

REPORT INFORMATION
  Report Type: Spontaneous
  Country: NL (occurrence: NL)
  Receive Date: 20210729
  Receipt Date: 20210729
  Transmission Date: 20211014
  Serious: Yes (Disabling)
  Sender: FDA-Public Use
  Company Number: NL-ALLERGAN-2126941US

PATIENT
  Sex: Male
  Weight: 81 kg

DRUGS (1)
  1. CITALOPRAM HYDROBROMIDE ? BP [Suspect]
     Active Substance: CITALOPRAM HYDROBROMIDE
     Indication: ANXIETY DISORDER
     Dosage: 1 X PER DAY 1 PIECE
     Route: 065
     Dates: start: 2013

REACTIONS (7)
  - Off label use [Unknown]
  - Aggression [Recovered/Resolved]
  - Sleep disorder [Recovered/Resolved]
  - Electric shock sensation [Recovered/Resolved]
  - Anxiety [Recovered/Resolved]
  - Paraesthesia [Recovered/Resolved]
  - Agitation [Recovered/Resolved]

NARRATIVE: CASE EVENT DATE: 20190816
